FAERS Safety Report 9553951 (Version 1)
Quarter: 2013Q3

REPORT INFORMATION
  Report Type: Spontaneous
  Country: US (occurrence: None)
  Receive Date: 20130913
  Receipt Date: 20130913
  Transmission Date: 20140515
  Serious: Yes (Other)
  Sender: FDA-Public Use
  Company Number: 1000046329

PATIENT
  Age: 55 Year
  Sex: Male

DRUGS (1)
  1. DALIRESP [Suspect]

REACTIONS (2)
  - Nervousness [None]
  - Feeling jittery [None]
